FAERS Safety Report 6725299-8 (Version None)
Quarter: 2010Q2

REPORT INFORMATION
  Report Type: 
  Country: None (occurrence: None)
  Receive Date: 20100513
  Receipt Date: 20100513
  Transmission Date: 20101027
  Serious: Yes (Other)
  Sender: FDA-Public Use
  Company Number: None

PATIENT
  Age: 65 Year
  Sex: Female
  Weight: 61.2356 kg

DRUGS (2)
  1. ACTONEL [Suspect]
     Indication: OSTEOPENIA
     Dosage: 150 MG ONE PER MONTH ORAL
     Route: 048
     Dates: start: 20090701, end: 20100101
  2. ACTONEL [Suspect]
     Indication: OSTEOPENIA
     Dosage: 35 MG ONE PER WEEK ORAL
     Route: 048
     Dates: start: 20020801, end: 20090701

REACTIONS (3)
  - ARTHRALGIA [None]
  - DRUG HYPERSENSITIVITY [None]
  - PAIN IN EXTREMITY [None]
